FAERS Safety Report 22016108 (Version 1)
Quarter: 2023Q1

REPORT INFORMATION
  Report Type: Spontaneous
  Country: US (occurrence: US)
  Receive Date: 20230221
  Receipt Date: 20230221
  Transmission Date: 20230417
  Serious: Yes (Other)
  Sender: FDA-Public Use
  Company Number: US-PFIZER INC-PV202300030394

PATIENT
  Age: 59 Year
  Sex: Female

DRUGS (5)
  1. PEMETREXED [Suspect]
     Active Substance: PEMETREXED
     Indication: Non-small cell lung cancer stage II
     Dosage: 6 CYCLES
  2. PEMETREXED [Suspect]
     Active Substance: PEMETREXED
     Dosage: 2 CYCLES
  3. PEMBROLIZUMAB [Concomitant]
     Active Substance: PEMBROLIZUMAB
     Indication: Non-small cell lung cancer stage II
     Dosage: 6 CYCLES
  4. PEMBROLIZUMAB [Concomitant]
     Active Substance: PEMBROLIZUMAB
     Dosage: 2 CYCLES
  5. CARBOPLATIN [Concomitant]
     Active Substance: CARBOPLATIN
     Indication: Non-small cell lung cancer stage II
     Dosage: 6 CYCLES

REACTIONS (1)
  - Oedema peripheral [Unknown]
